FAERS Safety Report 15888385 (Version 1)
Quarter: 2019Q1

REPORT INFORMATION
  Report Type: Spontaneous
  Country: US (occurrence: US)
  Receive Date: 20190130
  Receipt Date: 20190130
  Transmission Date: 20190417
  Serious: Yes (Other)
  Sender: FDA-Public Use
  Company Number: None

PATIENT
  Age: 6 Year
  Sex: Male
  Weight: 23.85 kg

DRUGS (8)
  1. CLOBAZAM ORAL SUSPENSION [Suspect]
     Active Substance: CLOBAZAM
     Indication: LENNOX-GASTAUT SYNDROME
     Dosage: ?          QUANTITY:1.5 ML;?
     Route: 048
     Dates: start: 20181217, end: 20190129
  2. MELATONIN [Concomitant]
     Active Substance: MELATONIN
  3. PROBIOTIC [Concomitant]
     Active Substance: PROBIOTICS NOS
  4. PREBIOTIC [Concomitant]
  5. BELVIQ [Concomitant]
     Active Substance: LORCASERIN HYDROCHLORIDE
  6. ONFI [Concomitant]
     Active Substance: CLOBAZAM
  7. EPIDIOLEX [Concomitant]
     Active Substance: CANNABIDIOL
  8. CLONIDINE. [Concomitant]
     Active Substance: CLONIDINE

REACTIONS (5)
  - Product substitution issue [None]
  - Injury [None]
  - Drug ineffective [None]
  - Seizure [None]
  - Speech disorder developmental [None]

NARRATIVE: CASE EVENT DATE: 20190129
